FAERS Safety Report 8996628 (Version 1)
Quarter: 2013Q1

REPORT INFORMATION
  Report Type: Report from Study
  Country: US (occurrence: US)
  Receive Date: 20130104
  Receipt Date: 20130104
  Transmission Date: 20140127
  Serious: Yes (Other)
  Sender: FDA-Public Use
  Company Number: US-PFIZER INC-2013000489

PATIENT
  Age: 45 Year
  Sex: Female

DRUGS (2)
  1. ENBREL [Suspect]
     Indication: RHEUMATOID ARTHRITIS
     Dosage: 50 MG, QWK
     Dates: start: 20121008
  2. METHOTREXATE SODIUM [Suspect]
     Dosage: UNK

REACTIONS (2)
  - Pharyngitis streptococcal [Recovered/Resolved]
  - Injection site haemorrhage [Not Recovered/Not Resolved]
